FAERS Safety Report 10045615 (Version 1)
Quarter: 2014Q1

REPORT INFORMATION
  Report Type: Spontaneous
  Country: US (occurrence: None)
  Receive Date: 20140306
  Receipt Date: 20140306
  Transmission Date: 20141002
  Serious: Yes (Hospitalization, Other)
  Sender: FDA-Public Use
  Company Number: 163-21880-13060255

PATIENT
  Age: 62 Year
  Sex: Female
  Weight: 59.42 kg

DRUGS (7)
  1. REVLIMID (LENALIDOMIDE) (10 MILLIGRAM, CAPSULES) [Suspect]
     Indication: PLASMA CELL MYELOMA
     Dosage: 1 IN 2 D
     Route: 048
     Dates: start: 20100614, end: 20130514
  2. ZOFRAN (ONDANSETRON HYDRCHLORIDE) (UNKNOWN) [Concomitant]
  3. OXYCONTIN (OXYCODNE) [Concomitant]
  4. DECADRON (DEXAMETHSONE) (UNKNOWN) [Concomitant]
  5. SPIRIVA (TIOTROPIUM BROMIDE) (UNKNOWN) [Concomitant]
  6. LEVOTHYROXINE (UNKNOWN) [Concomitant]
  7. LEVOTHYROXINE (LEVOTHYROXINE) [Concomitant]

REACTIONS (2)
  - Femur fracture [None]
  - Plasma cell myeloma [None]
